FAERS Safety Report 9181777 (Version 3)
Quarter: 2013Q4

REPORT INFORMATION
  Report Type: Report from Study
  Country: CA (occurrence: CA)
  Receive Date: 20130322
  Receipt Date: 20131008
  Transmission Date: 20140711
  Serious: Yes (Death, Other)
  Sender: FDA-Public Use
  Company Number: CA-JNJFOC-20130117316

PATIENT
  Age: 65 Year
  Sex: Female
  Weight: 104.33 kg

DRUGS (26)
  1. REMICADE [Suspect]
     Indication: ANKYLOSING SPONDYLITIS
     Route: 042
     Dates: start: 20130129
  2. REMICADE [Suspect]
     Indication: ANKYLOSING SPONDYLITIS
     Route: 042
     Dates: start: 20090223
  3. NOVOMIX 30 [Concomitant]
     Indication: TYPE 1 DIABETES MELLITUS
     Dosage: 40 UNITS , FREQUENCY ^DID^
     Route: 065
  4. METFORMIN [Concomitant]
     Route: 065
  5. HYDROMORPHONE [Concomitant]
     Dosage: DOSE AND FREQUENCY ILLEGIBLE
     Route: 065
  6. DILAUDID [Concomitant]
     Dosage: DOSE AND FREQUENCY ILLEGIBLE
     Route: 048
  7. COZAAR [Concomitant]
     Dosage: FREQUENCY ILLEGIBLE
     Route: 065
  8. TRIAMIZIDE [Concomitant]
     Indication: DIURETIC THERAPY
     Dosage: DOSE: 40.25 (UNITS UNSPECIFIED) FREQUENCY ILLEGIBLE
     Route: 065
  9. GABAPENTIN [Concomitant]
     Route: 065
  10. ASPIRIN [Concomitant]
     Route: 065
  11. DESIPRAMINE [Concomitant]
     Indication: ANTIDEPRESSANT THERAPY
     Route: 065
  12. RITALIN [Concomitant]
     Dosage: 1/2 / 3 HOURS WHILE AWAKE
     Route: 065
  13. PANTOPRAZOLE [Concomitant]
     Route: 065
  14. LOVASTATIN [Concomitant]
     Route: 065
  15. ZOPICLONE [Concomitant]
     Dosage: 1 AT BED TIME AS REQUIRED
     Route: 065
  16. VENTOLIN [Concomitant]
     Dosage: DOSE 2/2 X DAY
     Route: 048
  17. FLOVENT [Concomitant]
     Dosage: DOSE 2/2 X DAY
     Route: 048
  18. SYNTHROID [Concomitant]
     Route: 065
  19. DOMPERIDONE [Concomitant]
     Route: 048
  20. GLUCOSAMINE HYDROCHLORIDE [Concomitant]
     Route: 065
  21. CALCIUM [Concomitant]
     Route: 065
  22. VITAMIN D3 [Concomitant]
     Route: 065
  23. VITAMIN D [Concomitant]
     Route: 065
  24. HYDROCORTISONE [Concomitant]
     Dosage: 1-2 TIMES /DAY AS NEEDED
     Route: 065
  25. FUSIDIC ACID [Concomitant]
     Dosage: DOSE ILLEGIBLE ^AS NEEDED^
     Route: 065
  26. BENZYDAMINE HYDROCHLORIDE [Concomitant]
     Dosage: SWISH AND SPIT  AS NEEDED
     Route: 048

REACTIONS (9)
  - Death [Fatal]
  - Hepatic cirrhosis [Unknown]
  - Cellulitis [Not Recovered/Not Resolved]
  - Oedema [Not Recovered/Not Resolved]
  - Weight increased [Not Recovered/Not Resolved]
  - Dyspnoea [Not Recovered/Not Resolved]
  - Wheezing [Not Recovered/Not Resolved]
  - Hypokinesia [Not Recovered/Not Resolved]
  - Bacterial infection [Not Recovered/Not Resolved]
